FAERS Safety Report 18162199 (Version 2)
Quarter: 2020Q3

REPORT INFORMATION
  Report Type: Spontaneous
  Country: US (occurrence: US)
  Receive Date: 20200818
  Receipt Date: 20200928
  Transmission Date: 20201103
  Serious: No
  Sender: FDA-Public Use
  Company Number: US-GLAXOSMITHKLINE-US2020AMR163449

PATIENT
  Sex: Female

DRUGS (2)
  1. ZEJULA [Suspect]
     Active Substance: NIRAPARIB
     Dosage: 300 MG, QD (IN THE PM BOTH WITH AND WITHOUT FOOD)
  2. ZEJULA [Suspect]
     Active Substance: NIRAPARIB
     Indication: MALIGNANT PERITONEAL NEOPLASM
     Dosage: 300 MG, QD
     Route: 048
     Dates: start: 20170616

REACTIONS (3)
  - Pain in extremity [Not Recovered/Not Resolved]
  - Arthritis [Unknown]
  - Arthralgia [Unknown]
